FAERS Safety Report 10144883 (Version 1)
Quarter: 2014Q2

REPORT INFORMATION
  Report Type: Spontaneous
  Country: US (occurrence: US)
  Receive Date: 20140430
  Receipt Date: 20140430
  Transmission Date: 20141212
  Serious: No
  Sender: FDA-Public Use
  Company Number: US-SANOFI-AVENTIS-2013SA078365

PATIENT
  Age: 76 Year
  Sex: Male

DRUGS (5)
  1. DEMEROL [Suspect]
     Route: 065
  2. SUTENT [Suspect]
     Route: 048
  3. COUMADIN [Concomitant]
  4. LISINOPRIL [Concomitant]
  5. NEXIUM [Concomitant]

REACTIONS (1)
  - Renal disorder [Recovered/Resolved]
